FAERS Safety Report 8338464-3 (Version None)
Quarter: 2012Q2

REPORT INFORMATION
  Report Type: 
  Country: None (occurrence: None)
  Receive Date: 20120504
  Receipt Date: 20120501
  Transmission Date: 20120825
  Serious: Yes (Hospitalization, Other)
  Sender: FDA-Public Use
  Company Number: US-PFIZER INC-2012106905

PATIENT
  Sex: Female
  Weight: 68.027 kg

DRUGS (1)
  1. LYRICA [Suspect]
     Indication: PAIN
     Dosage: UNK
     Dates: start: 20120407, end: 20120407

REACTIONS (8)
  - FALL [None]
  - DIZZINESS [None]
  - VISION BLURRED [None]
  - THINKING ABNORMAL [None]
  - FEELING ABNORMAL [None]
  - HYPOACUSIS [None]
  - AMNESIA [None]
  - HEAD DISCOMFORT [None]
